FAERS Safety Report 16266199 (Version 2)
Quarter: 2019Q2

REPORT INFORMATION
  Report Type: Spontaneous
  Country: IT (occurrence: IT)
  Receive Date: 20190502
  Receipt Date: 20190521
  Transmission Date: 20190711
  Serious: Yes (Other)
  Sender: FDA-Public Use
  Company Number: IT-TEVA-2019-IT-1044057

PATIENT
  Age: 80 Year
  Sex: Female

DRUGS (3)
  1. BISOPROLOL HEMIFUMARATE [Concomitant]
     Active Substance: BISOPROLOL FUMARATE
     Route: 048
  2. ATORVASTATIN CALCIUM TRIHYDRATE [Concomitant]
     Active Substance: ATORVASTATIN CALCIUM
     Route: 048
  3. LEVOFLOXACIN. [Suspect]
     Active Substance: LEVOFLOXACIN
     Indication: PNEUMONITIS
     Dosage: 500 MILLIGRAM DAILY;
     Route: 048
     Dates: start: 20190311, end: 20190318

REACTIONS (2)
  - Tendon injury [Recovering/Resolving]
  - Tendon disorder [Recovering/Resolving]

NARRATIVE: CASE EVENT DATE: 20190320
